FAERS Safety Report 7194076-9 (Version None)
Quarter: 2010Q4

REPORT INFORMATION
  Report Type: 
  Country: None (occurrence: None)
  Receive Date: 20101124
  Receipt Date: 20100917
  Transmission Date: 20110411
  Serious: No
  Sender: FDA-Public Use
  Company Number: 018992

PATIENT
  Age: 33 Month

DRUGS (1)
  1. LACOSAMIDE [Suspect]

REACTIONS (1)
  - CHROMATURIA [None]
